FAERS Safety Report 19873722 (Version 5)
Quarter: 2023Q1

REPORT INFORMATION
  Report Type: Spontaneous
  Country: PL (occurrence: PL)
  Receive Date: 20210922
  Receipt Date: 20230109
  Transmission Date: 20230417
  Serious: Yes (Hospitalization, Other)
  Sender: FDA-Public Use
  Company Number: PL-ORION CORPORATION ORION PHARMA-SERT2021-0003

PATIENT
  Age: 76 Year
  Sex: Female

DRUGS (127)
  1. VENLAFAXINE [Suspect]
     Active Substance: VENLAFAXINE HYDROCHLORIDE
     Indication: Product used for unknown indication
     Dosage: UNK
     Route: 065
  2. VENLAFAXINE [Suspect]
     Active Substance: VENLAFAXINE HYDROCHLORIDE
     Dosage: UNK
     Route: 065
  3. FENTANYL [Suspect]
     Active Substance: FENTANYL
     Indication: Spinal muscular atrophy
     Dosage: UNK
     Route: 065
  4. FENTANYL [Suspect]
     Active Substance: FENTANYL
     Indication: Back pain
     Dosage: 14400 MICROGRAM, QD (14400 MICROGRAM, DAILY)
     Route: 065
  5. FENTANYL [Suspect]
     Active Substance: FENTANYL
     Dosage: UNK (12 PILLS PER DAY)
     Route: 065
  6. FENTANYL [Suspect]
     Active Substance: FENTANYL
     Dosage: 12 DOSAGE FORM (12 TABLET, UNK)
     Route: 065
  7. FENTANYL [Suspect]
     Active Substance: FENTANYL
     Indication: Pain
     Dosage: 150 MICROGRAM, QH (1 PATCH EVERY 72 HOURS.)
     Route: 062
  8. FENTANYL [Suspect]
     Active Substance: FENTANYL
     Dosage: 400 MICROGRAM (4 PATCHES OF 100 ?G / H EVERY 72 HOURS)
     Route: 062
  9. FENTANYL [Suspect]
     Active Substance: FENTANYL
     Dosage: REDUCED BY 25 MICROGRAM / H EVERY 2-3 WEEKS,
     Route: 062
  10. FENTANYL [Suspect]
     Active Substance: FENTANYL
     Dosage: 4 DOSAGE FORM, Q3D
     Route: 062
  11. FENTANYL [Suspect]
     Active Substance: FENTANYL
     Dosage: 3000 MICROGRAM, QD
     Route: 062
  12. FENTANYL [Suspect]
     Active Substance: FENTANYL
     Dosage: 75 MICROGRAM/HR TO 3 4 OF THE PATCH
     Route: 062
  13. FENTANYL [Suspect]
     Active Substance: FENTANYL
     Dosage: REDUCTION BY ONE TABLET EVERY TWO WEEKS
     Route: 065
  14. FENTANYL [Suspect]
     Active Substance: FENTANYL
     Dosage: 400 MICROGRAM, Q2H
     Route: 062
  15. FENTANYL [Suspect]
     Active Substance: FENTANYL
     Dosage: 1 DOSAGE FORM (150 MG/H (1 PATCH EVERY 72 H))
     Route: 065
  16. FENTANYL [Suspect]
     Active Substance: FENTANYL
     Dosage: UNK (400 MICROGRAM/HOUR)
     Route: 062
  17. FENTANYL [Suspect]
     Active Substance: FENTANYL
     Dosage: 3600 MICROGRAM (DAILY)
     Route: 062
  18. PREGABALIN [Suspect]
     Active Substance: PREGABALIN
     Indication: Pain
     Dosage: 75 MG IN THE MORNING AND 75 MG IN THE EVENING
     Route: 065
  19. PREGABALIN [Suspect]
     Active Substance: PREGABALIN
     Dosage: 150 MILLIGRAM, BID
     Route: 065
  20. PREGABALIN [Suspect]
     Active Substance: PREGABALIN
     Dosage: 300 MILLIGRAM, QD (75 MG IN THE MORNING AND 75 MG IN THE EVENING)
     Route: 065
  21. PREGABALIN [Suspect]
     Active Substance: PREGABALIN
     Dosage: 150 MILLIGRAM, QD (75 MG IN THE MORNING AND 75 MG IN THE EVENING)
     Route: 065
  22. PREGABALIN [Suspect]
     Active Substance: PREGABALIN
     Dosage: 150 MICROGRAM, BID
     Route: 065
  23. PREGABALIN [Suspect]
     Active Substance: PREGABALIN
     Dosage: 75 MICROGRAM, BID
     Route: 065
  24. TAPENTADOL [Suspect]
     Active Substance: TAPENTADOL
     Indication: Myalgia
     Dosage: UNK
     Route: 065
  25. TAPENTADOL [Suspect]
     Active Substance: TAPENTADOL
     Indication: Back pain
  26. TAPENTADOL [Suspect]
     Active Substance: TAPENTADOL
     Indication: Pain
  27. FENTANYL CITRATE [Suspect]
     Active Substance: FENTANYL CITRATE
     Indication: Myalgia
     Dosage: REDUCED BY 1 TABLET EVERY 2 WEEKS
     Route: 048
  28. FENTANYL CITRATE [Suspect]
     Active Substance: FENTANYL CITRATE
     Indication: Pain
     Dosage: 5 DOSAGE FORM, QD (STRENGTH: 400 ?G)
     Route: 048
  29. FENTANYL CITRATE [Suspect]
     Active Substance: FENTANYL CITRATE
     Indication: Sacral pain
     Dosage: 12 DOSAGE FORM, QD (STRENGTH: 400 MICROGRAMS)
     Route: 048
  30. FENTANYL CITRATE [Suspect]
     Active Substance: FENTANYL CITRATE
     Indication: Spinal muscular atrophy
     Dosage: UNK
     Route: 065
  31. FENTANYL CITRATE [Suspect]
     Active Substance: FENTANYL CITRATE
     Dosage: 4800 MICROGRAM, QD
     Route: 002
  32. FENTANYL CITRATE [Suspect]
     Active Substance: FENTANYL CITRATE
     Dosage: 1 DOSAGE FORM, QD
     Route: 065
  33. FENTANYL CITRATE [Suspect]
     Active Substance: FENTANYL CITRATE
     Dosage: 400 MICROGRAM, TWO TIMES A DAY
     Route: 065
  34. FENTANYL CITRATE [Suspect]
     Active Substance: FENTANYL CITRATE
     Dosage: 400 MG 12 TABLETS PER DAY
     Route: 065
  35. OXYCODONE [Suspect]
     Active Substance: OXYCODONE
     Indication: Myalgia
     Dosage: UNK
     Route: 065
  36. OXYCODONE [Suspect]
     Active Substance: OXYCODONE
     Indication: Back pain
  37. OXYCODONE [Suspect]
     Active Substance: OXYCODONE
     Indication: Pain
  38. MORPHINE [Suspect]
     Active Substance: MORPHINE
     Indication: Back pain
     Dosage: UNK
     Route: 065
  39. MORPHINE [Suspect]
     Active Substance: MORPHINE
     Indication: Myalgia
  40. MORPHINE [Suspect]
     Active Substance: MORPHINE
     Indication: Pain
  41. CHLORPROTHIXENE HYDROCHLORIDE [Suspect]
     Active Substance: CHLORPROTHIXENE HYDROCHLORIDE
     Indication: Mixed anxiety and depressive disorder
     Dosage: 15 MILLIGRAM, BID
     Route: 065
  42. CHLORPROTHIXENE HYDROCHLORIDE [Suspect]
     Active Substance: CHLORPROTHIXENE HYDROCHLORIDE
     Dosage: 30 MILLIGRAM, QD
     Route: 065
  43. FENTANYL [Suspect]
     Active Substance: FENTANYL
     Indication: Myalgia
     Dosage: UNK
     Route: 048
  44. FENTANYL [Suspect]
     Active Substance: FENTANYL
     Indication: Back pain
     Dosage: 400 AG 12 X DAILY
     Route: 065
  45. FENTANYL [Suspect]
     Active Substance: FENTANYL
     Dosage: 12 DOSAGE FORM (12 TABLET, UNK)
     Route: 065
  46. FENTANYL [Suspect]
     Active Substance: FENTANYL
     Indication: Sacral pain
     Dosage: UNK
     Route: 045
  47. AMITRIPTYLINE [Suspect]
     Active Substance: AMITRIPTYLINE
     Indication: Product used for unknown indication
     Dosage: UNK
     Route: 065
  48. TIANEPTINE SODIUM [Suspect]
     Active Substance: TIANEPTINE SODIUM
     Indication: Mixed anxiety and depressive disorder
     Dosage: 37.5 MILLIGRAM, QD (12.5 MG, TID (3/DAY))
     Route: 065
  49. CHONDROITIN SULFATE SODIUM NOS [Suspect]
     Active Substance: CHONDROITIN SULFATE SODIUM NOS
     Indication: Product used for unknown indication
     Dosage: 1000 MILLIGRAM, QD
     Route: 065
  50. BUPRENORPHINE [Suspect]
     Active Substance: BUPRENORPHINE
     Indication: Pain
     Dosage: 35 MICROGRAM PER HOUR
     Route: 062
  51. SERTRALINE [Suspect]
     Active Substance: SERTRALINE HYDROCHLORIDE
     Indication: Mixed anxiety and depressive disorder
     Dosage: UNK
     Route: 065
  52. HYDROXYZINE [Suspect]
     Active Substance: HYDROXYZINE HYDROCHLORIDE
     Indication: Product used for unknown indication
     Dosage: 10 MILLIGRAM, QD
     Route: 065
  53. PREGABALIN [Suspect]
     Active Substance: PREGABALIN
     Indication: Pain
     Dosage: 300 MICROGRAM, QD (150 MICROGRAM, TWO TIMES A DAY )
     Route: 048
  54. PREGABALIN [Suspect]
     Active Substance: PREGABALIN
     Dosage: 150 MICROGRAM, QD (75 MICROGRAM, TWO TIMES A DAY)
     Route: 048
  55. QUETIAPINE [Suspect]
     Active Substance: QUETIAPINE
     Indication: Product used for unknown indication
     Dosage: 25 MILLIGRAM, QD  (25 MILLIGRAM, ONCE A DAY PER NIGHT )
     Route: 065
  56. CHLORPROTHIXENE [Suspect]
     Active Substance: CHLORPROTHIXENE
     Indication: Mixed anxiety and depressive disorder
     Dosage: 30 MILLIGRAM, QD (15 MG, BID (2/DAY))
     Route: 065
  57. SERTRALINE [Concomitant]
     Active Substance: SERTRALINE HYDROCHLORIDE
     Indication: Mixed anxiety and depressive disorder
     Dosage: UNK
     Route: 065
  58. QUETIAPINE [Concomitant]
     Active Substance: QUETIAPINE
     Indication: Product used for unknown indication
     Dosage: 50 MILLIGRAM, QD (1 X 2 TABLETS FOR NIGHT)
     Route: 065
  59. QUETIAPINE [Concomitant]
     Active Substance: QUETIAPINE
     Dosage: 25 MILLIGRAM, QD (NIGHT)
     Route: 065
  60. QUETIAPINE [Concomitant]
     Active Substance: QUETIAPINE
     Dosage: UNK
     Route: 065
  61. LORAZEPAM [Concomitant]
     Active Substance: LORAZEPAM
     Indication: Mixed anxiety and depressive disorder
     Dosage: UNK
     Route: 065
  62. HYDROXYZINE [Concomitant]
     Active Substance: HYDROXYZINE HYDROCHLORIDE
     Indication: Product used for unknown indication
     Dosage: 10 MILLIGRAM, QD (FOR THE NIGHT)
     Route: 048
  63. HYDROXYZINE [Concomitant]
     Active Substance: HYDROXYZINE HYDROCHLORIDE
     Dosage: UNK
     Route: 065
  64. TIANEPTINE SODIUM [Concomitant]
     Active Substance: TIANEPTINE SODIUM
     Indication: Mixed anxiety and depressive disorder
     Dosage: UNK
     Route: 065
  65. TIANEPTINE SODIUM [Concomitant]
     Active Substance: TIANEPTINE SODIUM
     Dosage: 12.5 MILLIGRAM, Q8H
     Route: 065
  66. TIANEPTINE SODIUM [Concomitant]
     Active Substance: TIANEPTINE SODIUM
     Dosage: 37.5 MILLIGRAM, QD (12.5 MG, 3X PER DAY)
     Route: 065
  67. BROMHEXINE HYDROCHLORIDE [Concomitant]
     Active Substance: BROMHEXINE HYDROCHLORIDE
     Indication: Product used for unknown indication
     Dosage: 1 DOSAGE FORM, QD
     Route: 048
  68. TRAVISCO [Concomitant]
     Dosage: UNK (2X1)
     Route: 048
  69. INHIBACE [Concomitant]
     Active Substance: CILAZAPRIL ANHYDROUS
     Dosage: (STRENGTH: 5 MG, 2 X 1 TABLETS)
     Route: 048
  70. INHIBACE [Concomitant]
     Active Substance: CILAZAPRIL ANHYDROUS
     Dosage: 10 MILLIGRAM, QD
     Route: 065
  71. MIZODIN [Concomitant]
     Indication: Product used for unknown indication
     Dosage: STRENGTH: 250 MG, 2 X 1/2 TABLET
     Route: 048
  72. MIZODIN [Concomitant]
     Dosage: 500 MILLIGRAM, QD (250 MG, 2X PER DAY)
     Route: 065
  73. MIZODIN [Concomitant]
     Dosage: 250 MILLIGRAM, QD (250 MG (2 X HALF TABLET))
     Route: 065
  74. MIZODIN [Concomitant]
     Dosage: 1 MILLIGRAM, QD (0.5 MILLIGRAM, TWO TIMES A DAY)
     Route: 048
  75. CAPTOPRIL [Concomitant]
     Active Substance: CAPTOPRIL
     Indication: Product used for unknown indication
     Dosage: UNK (STRENGTH: 25 MG, AD HOC)
     Route: 048
  76. CAPTOPRIL [Concomitant]
     Active Substance: CAPTOPRIL
     Dosage: 25 MILLIGRAM
     Route: 048
  77. POTASSIUM CHLORIDE [Concomitant]
     Active Substance: POTASSIUM CHLORIDE
     Indication: Product used for unknown indication
     Dosage: 1X1
     Route: 048
  78. POTASSIUM CHLORIDE [Concomitant]
     Active Substance: POTASSIUM CHLORIDE
     Dosage: 1 DOSAGE FORM, QD
     Route: 065
  79. PIRACETAM [Concomitant]
     Active Substance: PIRACETAM
     Dosage: UNK (STRENGTH: 1200 MG, 2X1)
     Route: 048
  80. PIRACETAM [Concomitant]
     Active Substance: PIRACETAM
     Dosage: 2400 MILLIGRAM, QD
     Route: 065
  81. ETOFENAMATE [Concomitant]
     Active Substance: ETOFENAMATE
     Indication: Product used for unknown indication
     Dosage: UNK
     Route: 061
  82. Urosept [Concomitant]
     Dosage: UNK (2X1)
     Route: 048
  83. Urosept [Concomitant]
     Dosage: 2 DOSAGE FORM, QD
     Route: 065
  84. Luteina [Concomitant]
     Indication: Product used for unknown indication
     Dosage: UNK (STRENGTH: 50 MG, 1X1)
     Route: 060
  85. Luteina [Concomitant]
     Dosage: 50 MILLIGRAM, QD
     Route: 065
  86. VITAMIN D3 [Concomitant]
     Active Substance: CHOLECALCIFEROL
     Dosage: 4000 DOSAGE FORM (1X1)
     Route: 048
  87. VITAMIN D3 [Concomitant]
     Active Substance: CHOLECALCIFEROL
     Dosage: 1 DOSAGE FORM, QD
     Route: 065
  88. VITAMIN D3 [Concomitant]
     Active Substance: CHOLECALCIFEROL
     Dosage: 4000 INTERNATIONAL UNIT, QD
     Route: 065
  89. ALLOPURINOL [Concomitant]
     Active Substance: ALLOPURINOL
     Indication: Product used for unknown indication
     Dosage: (STRENGTH: 300 MG, 1X1/2 TABLET)
     Route: 048
  90. ALLOPURINOL [Concomitant]
     Active Substance: ALLOPURINOL
     Dosage: 300 MILLIGRAM, QD
     Route: 065
  91. ALLOPURINOL [Concomitant]
     Active Substance: ALLOPURINOL
     Dosage: 150 MILLIGRAM, QD
     Route: 065
  92. ALLOPURINOL [Concomitant]
     Active Substance: ALLOPURINOL
     Dosage: 0.5 DOSAGE FORM, QD
     Route: 048
  93. TORECAN [Concomitant]
     Active Substance: THIETHYLPERAZINE MALATE
     Indication: Product used for unknown indication
     Dosage: UNK (STRENGTH: 6.5 MG, 1X1)
     Route: 048
  94. TORECAN [Concomitant]
     Active Substance: THIETHYLPERAZINE MALATE
     Dosage: 6.5 MILLIGRAM, QD
     Route: 065
  95. INDAPAMIDE [Concomitant]
     Active Substance: INDAPAMIDE
     Indication: Product used for unknown indication
     Dosage: UNK (1X1)
     Route: 048
  96. INDAPAMIDE [Concomitant]
     Active Substance: INDAPAMIDE
     Dosage: 1 DOSAGE FORM, QD
     Route: 048
  97. BISOPROLOL [Concomitant]
     Active Substance: BISOPROLOL
     Indication: Product used for unknown indication
     Dosage: UNK (STRENGTH: 5 MG, 1 X 1/2 TABLET)
     Route: 048
  98. BISOPROLOL [Concomitant]
     Active Substance: BISOPROLOL
     Dosage: 5 MILLIGRAM, QD
     Route: 065
  99. BISOPROLOL [Concomitant]
     Active Substance: BISOPROLOL
     Dosage: 0.5 DOSAGE FORM, QD
     Route: 048
  100. NITRENDIPINE [Concomitant]
     Active Substance: NITRENDIPINE
     Indication: Product used for unknown indication
     Dosage: UNK (STRENGTH: 10 MG, 1 X 1/2 TABLET)
     Route: 048
  101. NITRENDIPINE [Concomitant]
     Active Substance: NITRENDIPINE
     Dosage: 5 MILLIGRAM, QD (5 MILLIGRAM DAILY; )
     Route: 065
  102. NITRENDIPINE [Concomitant]
     Active Substance: NITRENDIPINE
     Dosage: 0.5 DOSAGE FORM, QD
     Route: 048
  103. DUSPATALIN RETARD [Concomitant]
     Indication: Product used for unknown indication
     Dosage: UNK (2X1)
     Route: 048
  104. DUSPATALIN RETARD [Concomitant]
     Dosage: 2 DOSAGE FORM, QD (UNK, BID (2/DAY))
     Route: 048
  105. ULGIX LAXI [Concomitant]
     Dosage: UNK (3X1)
     Route: 048
  106. ULGIX LAXI [Concomitant]
     Dosage: 3 DOSAGE FORM, QD
     Route: 065
  107. LIOTON [Concomitant]
     Indication: Product used for unknown indication
     Dosage: UNK (STRENGTH: 1000)
     Route: 061
  108. DROTAVERINE HYDROCHLORIDE [Concomitant]
     Active Substance: DROTAVERINE HYDROCHLORIDE
     Indication: Product used for unknown indication
     Dosage: UNK (2X1)
     Route: 048
  109. DROTAVERINE HYDROCHLORIDE [Concomitant]
     Active Substance: DROTAVERINE HYDROCHLORIDE
     Dosage: 2 DOSAGE FORM, QD
     Route: 065
  110. ULGIX WZDECIA [Concomitant]
     Dosage: UNK (2X2)
     Route: 048
  111. Structum [Concomitant]
     Indication: Product used for unknown indication
     Dosage: UNK (STRENGTH: 500 MG, 2X1)
     Route: 048
  112. NITRENDIPINE [Concomitant]
     Active Substance: NITRENDIPINE
     Dosage: 10 MILLIGRAM, QD
     Route: 065
  113. MEBEVERINE [Concomitant]
     Active Substance: MEBEVERINE
     Dosage: 2 DOSAGE FORM, QD
     Route: 065
  114. CHOLESTEROL [Concomitant]
     Active Substance: CHOLESTEROL
     Indication: Product used for unknown indication
     Dosage: 2 DOSAGE FORM, QD
     Route: 065
  115. Rennie [Concomitant]
     Dosage: 2 DOSAGE FORM, QD
     Route: 065
  116. HEPARIN SODIUM [Concomitant]
     Active Substance: HEPARIN SODIUM
     Dosage: UNK
     Route: 061
  117. PENTOXIFYLLINE [Concomitant]
     Active Substance: PENTOXIFYLLINE
     Indication: Pain
     Dosage: UNK
     Route: 065
  118. LIDOCAINE [Concomitant]
     Active Substance: LIDOCAINE
     Indication: Pain
     Dosage: 18 DOSAGE FORM, QD
     Route: 042
  119. BUPRENORPHINE [Concomitant]
     Active Substance: BUPRENORPHINE
     Indication: Product used for unknown indication
     Dosage: 35 MICROGRAM, QH
     Route: 062
  120. TOLPERISONE [Concomitant]
     Active Substance: TOLPERISONE
     Indication: Myalgia
     Dosage: UNK
     Route: 065
  121. DULOXETINE [Concomitant]
     Active Substance: DULOXETINE
     Indication: Product used for unknown indication
     Dosage: 60 MILLIGRAM, AM
     Route: 065
  122. DULOXETINE [Concomitant]
     Active Substance: DULOXETINE
     Dosage: 30 MILLIGRAM, AM
     Route: 065
  123. PIRACETAM [Concomitant]
     Active Substance: PIRACETAM
     Indication: Product used for unknown indication
     Dosage: 1 DOSAGE FORM, TWO TIMES A DAY
     Route: 048
  124. Rennie [Concomitant]
     Indication: Product used for unknown indication
     Dosage: 2 X 1 TABLET
     Route: 048
  125. Rennie [Concomitant]
     Dosage: 2 DOSAGE FORM ((UNITS AND DOSE NOT PROVIDED), BID (2/DAY) )
     Route: 048
  126. DROTAVERINE HYDROCHLORIDE [Concomitant]
     Active Substance: DROTAVERINE HYDROCHLORIDE
     Dosage: 2 DOSAGE FORM, QD (UNK, BID (2/DAY)
     Route: 048
  127. TIANEPTINE [Concomitant]
     Active Substance: TIANEPTINE
     Indication: Product used for unknown indication
     Dosage: UNK
     Route: 065

REACTIONS (24)
  - Pain [Unknown]
  - Affective disorder [Recovered/Resolved]
  - Drug intolerance [Unknown]
  - Drug ineffective [Unknown]
  - Intentional product misuse [Unknown]
  - Drug dependence [Unknown]
  - Withdrawal syndrome [Unknown]
  - Drug tolerance decreased [Unknown]
  - Contraindicated product administered [Unknown]
  - Obstruction [Unknown]
  - Hypotension [Unknown]
  - Intentional product use issue [Unknown]
  - Constipation [Recovering/Resolving]
  - Mental disorder [Unknown]
  - Drug use disorder [Unknown]
  - Asthenia [Unknown]
  - Drug withdrawal syndrome [Unknown]
  - Product use in unapproved indication [Unknown]
  - Tremor [Unknown]
  - Hyperhidrosis [Unknown]
  - Mixed anxiety and depressive disorder [Unknown]
  - Anxiety [Recovering/Resolving]
  - Myalgia [Recovering/Resolving]
  - Chills [Recovering/Resolving]

NARRATIVE: CASE EVENT DATE: 20170101
